FAERS Safety Report 9370780 (Version 1)
Quarter: 2013Q2

REPORT INFORMATION
  Report Type: Spontaneous
  Country: FI (occurrence: FI)
  Receive Date: 20130626
  Receipt Date: 20130626
  Transmission Date: 20140414
  Serious: Yes (Other)
  Sender: FDA-Public Use
  Company Number: FI-WATSON-2013-11608

PATIENT
  Age: 40 Year
  Sex: Male

DRUGS (1)
  1. DIAZEPAM (UNKNOWN) [Suspect]
     Indication: EPILEPSY
     Dosage: 5 MG, DAILY
     Route: 054
     Dates: start: 20130521

REACTIONS (3)
  - Diarrhoea [Recovered/Resolved]
  - Application site pain [Recovered/Resolved]
  - Drug ineffective [Not Recovered/Not Resolved]
